FAERS Safety Report 9620986 (Version 2)
Quarter: 2013Q4

REPORT INFORMATION
  Report Type: Report from Study
  Country: CL (occurrence: CL)
  Receive Date: 20131015
  Receipt Date: 20131022
  Transmission Date: 20140711
  Serious: Yes (Hospitalization)
  Sender: FDA-Public Use
  Company Number: PHHY2013CL114791

PATIENT
  Age: 54 Year
  Sex: Male

DRUGS (2)
  1. LEPONEX [Suspect]
     Dosage: UNK
  2. LEPONEX [Suspect]
     Dosage: UNK

REACTIONS (1)
  - Hypoglycaemia [Unknown]
